FAERS Safety Report 7063494-1 (Version None)
Quarter: 2010Q4

REPORT INFORMATION
  Report Type: 
  Country: None (occurrence: None)
  Receive Date: 20101026
  Receipt Date: 20100305
  Transmission Date: 20110411
  Serious: No
  Sender: FDA-Public Use
  Company Number: US-ABBOTT-10P-163-0631898-00

PATIENT
  Sex: Female
  Weight: 75.364 kg

DRUGS (4)
  1. LUPRON DEPOT [Suspect]
     Indication: ENDOMETRIOSIS
     Route: 030
     Dates: start: 20100101, end: 20100101
  2. LUPRON DEPOT [Suspect]
     Route: 030
     Dates: start: 20100201, end: 20100201
  3. CELEXA [Concomitant]
     Indication: DEPRESSION
  4. ROBINUL [Concomitant]
     Indication: PRODUCT USED FOR UNKNOWN INDICATION

REACTIONS (3)
  - HYPOAESTHESIA FACIAL [None]
  - PARAESTHESIA ORAL [None]
  - TREMOR [None]
